FAERS Safety Report 17023425 (Version 2)
Quarter: 2019Q4

REPORT INFORMATION
  Report Type: Spontaneous
  Country: US (occurrence: US)
  Receive Date: 20191112
  Receipt Date: 20191115
  Transmission Date: 20200122
  Serious: No
  Sender: FDA-Public Use
  Company Number: US-JNJFOC-20191115586

PATIENT
  Sex: Male
  Weight: 75.36 kg

DRUGS (1)
  1. ZYRTEC [Suspect]
     Active Substance: CETIRIZINE HYDROCHLORIDE
     Indication: MULTIPLE ALLERGIES
     Dosage: DATE OF LAST ADMIN:10/NOV/2019
     Route: 048
     Dates: start: 20191026

REACTIONS (1)
  - Drug ineffective [Unknown]
